FAERS Safety Report 21136788 (Version 2)
Quarter: 2022Q3

REPORT INFORMATION
  Report Type: Spontaneous
  Country: US (occurrence: US)
  Receive Date: 20220727
  Receipt Date: 20220727
  Transmission Date: 20221026
  Serious: Yes (Life-Threatening, Hospitalization, Disabling, Other)
  Sender: FDA-Public Use
  Company Number: US-PFIZER INC-PV202200024009

PATIENT
  Age: 69 Year
  Sex: Female

DRUGS (4)
  1. METHYLPREDNISOLONE SODIUM SUCCINATE [Suspect]
     Active Substance: METHYLPREDNISOLONE SODIUM SUCCINATE
     Indication: Back pain
     Dosage: FLUOROSCOPIC GUIDED LEFT L4-L5 AND L5-S1 TRANSFORAMINAL EPIDURAL STEROID INJECTIONS
     Route: 008
  2. METHYLPREDNISOLONE SODIUM SUCCINATE [Suspect]
     Active Substance: METHYLPREDNISOLONE SODIUM SUCCINATE
     Indication: Radiculopathy
  3. LIDOCAINE HYDROCHLORIDE [Suspect]
     Active Substance: LIDOCAINE HYDROCHLORIDE
     Indication: Back pain
     Dosage: FLUOROSCOPIC GUIDED LEFT L4-L5 AND L5-S1
     Route: 008
  4. LIDOCAINE HYDROCHLORIDE [Suspect]
     Active Substance: LIDOCAINE HYDROCHLORIDE
     Indication: Radiculopathy

REACTIONS (2)
  - Paralysis [Not Recovered/Not Resolved]
  - Hemianaesthesia [Not Recovered/Not Resolved]
